FAERS Safety Report 11072702 (Version 1)
Quarter: 2015Q2

REPORT INFORMATION
  Report Type: Spontaneous
  Country: TR (occurrence: TR)
  Receive Date: 20150428
  Receipt Date: 20150428
  Transmission Date: 20150821
  Serious: Yes (Other)
  Sender: FDA-Public Use
  Company Number: TR-ACTAVIS-2015-08798

PATIENT
  Age: 13 Year
  Sex: Male

DRUGS (12)
  1. RISPERIDONE (UNKNOWN) [Suspect]
     Active Substance: RISPERIDONE
     Indication: SCHIZOPHRENIA, PARANOID TYPE
     Dosage: 3 MG, DAILY
     Route: 065
  2. ARIPIPRAZOLE. [Concomitant]
     Active Substance: ARIPIPRAZOLE
     Dosage: 30 MG, DAILY
     Route: 065
  3. RISPERIDONE (UNKNOWN) [Suspect]
     Active Substance: RISPERIDONE
     Dosage: 2 MG, DAILY
     Route: 065
  4. ARIPIPRAZOLE. [Concomitant]
     Active Substance: ARIPIPRAZOLE
     Indication: SCHIZOPHRENIA, PARANOID TYPE
     Dosage: 20 MG, DAILY
     Route: 065
  5. CLOZAPINE (UNKNOWN) [Suspect]
     Active Substance: CLOZAPINE
     Dosage: 6.25 MG, DAILY
     Route: 065
  6. OLANZAPINE. [Concomitant]
     Active Substance: OLANZAPINE
     Indication: SCHIZOPHRENIA, DISORGANISED TYPE
     Dosage: 20 MG, DAILY
     Route: 065
  7. ARIPIPRAZOLE. [Concomitant]
     Active Substance: ARIPIPRAZOLE
     Dosage: 2.5 MG, DAILY
     Route: 065
  8. CLOZAPINE (UNKNOWN) [Suspect]
     Active Substance: CLOZAPINE
     Indication: SCHIZOPHRENIA, PARANOID TYPE
     Dosage: 18.75 MG, DAILY
     Route: 065
  9. AMISULPRIDE (UNKNOWN) [Suspect]
     Active Substance: AMISULPRIDE
     Indication: SCHIZOPHRENIA, PARANOID TYPE
     Dosage: UNK
     Route: 065
  10. HALOPERIDOL (UNKNOWN) [Suspect]
     Active Substance: HALOPERIDOL
     Indication: SCHIZOPHRENIA, PARANOID TYPE
     Dosage: UNK
     Route: 065
  11. TRIFLUOPERAZINE [Suspect]
     Active Substance: TRIFLUOPERAZINE\TRIFLUOPERAZINE HYDROCHLORIDE
     Indication: SCHIZOPHRENIA, PARANOID TYPE
     Dosage: 4 MG, DAILY
     Route: 065
  12. QUETIAPINE [Concomitant]
     Active Substance: QUETIAPINE
     Indication: SCHIZOPHRENIA, PARANOID TYPE
     Dosage: UNK
     Route: 065

REACTIONS (6)
  - Condition aggravated [Unknown]
  - Irritability [Unknown]
  - Neutropenia [Recovering/Resolving]
  - Blood prolactin increased [Unknown]
  - Gynaecomastia [Unknown]
  - White blood cell count decreased [Unknown]
